FAERS Safety Report 9745547 (Version 1)
Quarter: 2013Q4

REPORT INFORMATION
  Report Type: Spontaneous
  Country: US (occurrence: None)
  Receive Date: 20131205
  Receipt Date: 20131205
  Transmission Date: 20140711
  Serious: Yes (Other)
  Sender: FDA-Public Use
  Company Number: None

PATIENT
  Age: 37 Year
  Sex: Female
  Weight: 70.5 kg

DRUGS (1)
  1. ABLAVAR [Suspect]
     Indication: CHOLANGIOGRAM
     Route: 042
     Dates: start: 20131021

REACTIONS (3)
  - Throat irritation [None]
  - Nausea [None]
  - Contrast media reaction [None]
